FAERS Safety Report 20091491 (Version 2)
Quarter: 2021Q4

REPORT INFORMATION
  Report Type: Spontaneous
  Country: None (occurrence: US)
  Receive Date: 20211119
  Receipt Date: 20211221
  Transmission Date: 20220304
  Serious: No
  Sender: FDA-Public Use
  Company Number: US-Baxter Healthcare-2122068

PATIENT

DRUGS (4)
  1. TISSEEL FIBRIN SEALANT [Suspect]
     Active Substance: FIBRINOGEN HUMAN\THROMBIN HUMAN
  2. TISSEEL [Suspect]
     Active Substance: FIBRINOGEN HUMAN\THROMBIN HUMAN
  3. Easy Spray [Concomitant]
  4. Spray Set [Concomitant]

REACTIONS (1)
  - No adverse event [None]
